FAERS Safety Report 6160255-2 (Version None)
Quarter: 2009Q2

REPORT INFORMATION
  Report Type: 
  Country: None (occurrence: None)
  Receive Date: 20090420
  Receipt Date: 20090413
  Transmission Date: 20091009
  Serious: Yes (Other)
  Sender: FDA-Public Use
  Company Number: B0570250A

PATIENT
  Sex: Male

DRUGS (4)
  1. SALBUTAMOL [Suspect]
     Indication: ASTHMA
     Dosage: 500MG PER DAY
     Route: 055
     Dates: start: 20090303, end: 20090305
  2. VENTOLIN [Suspect]
     Indication: ASTHMA
     Route: 055
  3. PYOSTACINE [Concomitant]
     Route: 048
  4. LEVOTHYROXINE SODIUM [Concomitant]
     Dosage: 1U PER DAY
     Route: 048

REACTIONS (4)
  - DYSPHAGIA [None]
  - GLOSSODYNIA [None]
  - THROAT IRRITATION [None]
  - TRACHEAL PAIN [None]
